FAERS Safety Report 22591319 (Version 2)
Quarter: 2023Q2

REPORT INFORMATION
  Report Type: Other
  Country: US (occurrence: None)
  Receive Date: 20230612
  Receipt Date: 20230620
  Transmission Date: 20230721
  Serious: Yes (Other)
  Sender: FDA-Public Use
  Company Number: US-ROCHE-3364496

PATIENT

DRUGS (4)
  1. BEVACIZUMAB [Suspect]
     Active Substance: BEVACIZUMAB
     Indication: Nasopharyngeal cancer
     Dosage: ON DAYS 1, 22, AND 43, FOLLOWED BY ADJUVANT BEVACIZUMAB (15MG/KG) AND CISPLATIN (80MG/M2) ON DAY 1
     Route: 042
  2. CISPLATIN [Suspect]
     Active Substance: CISPLATIN
     Indication: Nasopharyngeal cancer
     Dosage: 100MG/M2 ON DAYS 1, 22, AND 43,
     Route: 042
  3. CISPLATIN [Suspect]
     Active Substance: CISPLATIN
     Route: 042
  4. FLUOROURACIL [Suspect]
     Active Substance: FLUOROURACIL
     Indication: Nasopharyngeal cancer
     Dosage: ON DAYS 1 TO 4
     Route: 042

REACTIONS (18)
  - Hearing disability [Unknown]
  - Hypoacusis [Unknown]
  - Otitis media [Unknown]
  - Ill-defined disorder [Unknown]
  - Fatigue [Unknown]
  - Dehydration [Unknown]
  - Dry mouth [Unknown]
  - Dysphagia [Unknown]
  - Radiation mucositis [Unknown]
  - Infection [Unknown]
  - Muscular weakness [Unknown]
  - Nervous system disorder [Unknown]
  - Peripheral motor neuropathy [Unknown]
  - Peripheral sensory neuropathy [Unknown]
  - Neuralgia [Unknown]
  - Peripheral ischaemia [Unknown]
  - Arterial injury [Unknown]
  - Radiation skin injury [Unknown]
